FAERS Safety Report 8905677 (Version 2)
Quarter: 2013Q2

REPORT INFORMATION
  Report Type: Report from Study
  Country: JP (occurrence: JP)
  Receive Date: 20121111
  Receipt Date: 20130524
  Transmission Date: 20140414
  Serious: Yes (Other)
  Sender: FDA-Public Use
  Company Number: JP-009507513-2012SP028329

PATIENT
  Age: 62 Year
  Sex: Male
  Weight: 67 kg

DRUGS (12)
  1. PEGINTRON [Suspect]
     Indication: CHRONIC HEPATITIS C
     Dosage: 1.5 MICROGRAM PER KILOGRAM, QW, DAILY DOSE UNKNOWN
     Route: 058
     Dates: start: 20120508, end: 20130409
  2. REBETOL [Suspect]
     Indication: CHRONIC HEPATITIS C
     Dosage: 400 MG, QD
     Route: 048
     Dates: start: 20120508, end: 20120528
  3. REBETOL [Suspect]
     Dosage: 200 MG, QD
     Route: 048
     Dates: start: 20120703, end: 20120723
  4. REBETOL [Suspect]
     Dosage: 400 MG, QD
     Route: 048
     Dates: start: 20120724, end: 20120806
  5. REBETOL [Suspect]
     Dosage: 200 MG, QD
     Route: 048
     Dates: start: 20120807, end: 20130409
  6. TELAVIC [Suspect]
     Indication: CHRONIC HEPATITIS C
     Dosage: 2250 MG, QD
     Route: 048
     Dates: start: 20120508, end: 20120512
  7. TETUCUR [Concomitant]
     Indication: IRON DEFICIENCY ANAEMIA
     Dosage: 100 MG, QD, FORMULATION: POR
     Route: 048
  8. AMLODIPINE BESYLATE [Concomitant]
     Indication: HYPERTENSION
     Dosage: 2.5 MG, QD,
     Route: 048
     Dates: end: 20120512
  9. RASILEZ [Concomitant]
     Indication: HYPERTENSION
     Dosage: 300 MG, QD, FORMULATION: POR
     Route: 048
     Dates: end: 20120511
  10. MAINTATE [Concomitant]
     Indication: HYPERTENSION
     Dosage: 2.5 MG, QD
     Route: 048
     Dates: end: 20120513
  11. OLMETEC [Concomitant]
     Indication: HYPERTENSION
     Dosage: 20 MG, QD, FORMULATION: POR
     Route: 048
     Dates: end: 20120513
  12. AMOBAN [Concomitant]
     Indication: INSOMNIA
     Dosage: 7.5 MG, QD, FORMULATION: POR
     Route: 048

REACTIONS (2)
  - Renal impairment [Recovering/Resolving]
  - Drug eruption [Recovering/Resolving]
